FAERS Safety Report 4407175-9 (Version None)
Quarter: 2004Q3

REPORT INFORMATION
  Report Type: 
  Country: None (occurrence: None)
  Receive Date: 20040723
  Receipt Date: 20040723
  Transmission Date: 20050211
  Serious: Yes (Hospitalization)
  Sender: FDA-Public Use
  Company Number: None

PATIENT
  Age: 49 Year
  Sex: Male
  Weight: 66.6788 kg

DRUGS (1)
  1. VENOGLOBULIN [Suspect]
     Indication: MUSCULAR WEAKNESS
     Dosage: 30 GM/300 ML Q 24 HRS IV
     Route: 042
     Dates: start: 20040705, end: 20040708

REACTIONS (1)
  - MENINGITIS ASEPTIC [None]
